FAERS Safety Report 15410837 (Version 1)
Quarter: 2018Q3

REPORT INFORMATION
  Report Type: Report from Study
  Country: US (occurrence: US)
  Receive Date: 20180921
  Receipt Date: 20180921
  Transmission Date: 20181010
  Serious: Yes (Other)
  Sender: FDA-Public Use
  Company Number: US-UCBSA-2018039928

PATIENT
  Sex: Male

DRUGS (1)
  1. LEVETIRACETAM. [Suspect]
     Active Substance: LEVETIRACETAM
     Indication: PRODUCT USED FOR UNKNOWN INDICATION
     Dosage: 100 MG/KG, SPLIT INTO 2 DOSES

REACTIONS (2)
  - Generalised tonic-clonic seizure [Recovered/Resolved]
  - Myoclonus [Recovered/Resolved]
